FAERS Safety Report 22539016 (Version 2)
Quarter: 2023Q2

REPORT INFORMATION
  Report Type: Report from Study
  Country: JP (occurrence: JP)
  Receive Date: 20230609
  Receipt Date: 20230614
  Transmission Date: 20230722
  Serious: Yes (Life-Threatening)
  Sender: FDA-Public Use
  Company Number: JP-SAKK-2023SA174728AA

PATIENT
  Age: 62 Year
  Sex: Female
  Weight: 66.6 kg

DRUGS (9)
  1. ISATUXIMAB [Suspect]
     Active Substance: ISATUXIMAB
     Indication: Plasma cell myeloma refractory
     Dosage: 10 MG/KG
     Route: 041
     Dates: start: 20221025
  2. DEXAMETHASONE [Concomitant]
     Active Substance: DEXAMETHASONE
     Indication: Plasma cell myeloma refractory
     Dosage: 20 MG/DAY
     Route: 065
     Dates: start: 20221025
  3. CALONAL [Concomitant]
     Active Substance: ACETAMINOPHEN
     Indication: Prophylaxis
     Dosage: DAILY DOSE: 600 MG
     Route: 065
     Dates: start: 20221025, end: 20221025
  4. NIPOLAZIN [Concomitant]
     Indication: Prophylaxis
     Dosage: DAILY DOSE: 3 MG
     Route: 065
     Dates: start: 20221025, end: 20221025
  5. ACYCLOVIR [Concomitant]
     Active Substance: ACYCLOVIR
     Indication: Infection prophylaxis
     Dosage: DAILY DOSE: 200 MG
     Route: 065
     Dates: start: 2022, end: 202211
  6. LEVOFLOXACIN HEMIHYDRATE [Concomitant]
     Active Substance: LEVOFLOXACIN
     Indication: Infection prophylaxis
     Dosage: DAILY DOSE: 250 MG
     Route: 065
     Dates: start: 2022, end: 202211
  7. FLUCONAZOLE [Concomitant]
     Active Substance: FLUCONAZOLE
     Indication: Infection prophylaxis
     Dosage: DAILY DOSE: 100 MG
     Route: 065
     Dates: start: 2022, end: 202211
  8. FILGRASTIM [Concomitant]
     Active Substance: FILGRASTIM
     Indication: Infection prophylaxis
     Dosage: DAILY DOSE: 75 UG
     Route: 065
     Dates: start: 20221027, end: 202211
  9. FILGRASTIM [Concomitant]
     Active Substance: FILGRASTIM
     Indication: White blood cell count decreased

REACTIONS (2)
  - Platelet count decreased [Not Recovered/Not Resolved]
  - White blood cell count decreased [Recovered/Resolved]

NARRATIVE: CASE EVENT DATE: 20221026
